FAERS Safety Report 7445874-5 (Version None)
Quarter: 2011Q2

REPORT INFORMATION
  Report Type: 
  Country: None (occurrence: None)
  Receive Date: 20110429
  Receipt Date: 20110418
  Transmission Date: 20111010
  Serious: Yes (Other)
  Sender: FDA-Public Use
  Company Number: ZA-ELI_LILLY_AND_COMPANY-ZA201104007048

PATIENT
  Sex: Female

DRUGS (3)
  1. ZYPREXA [Suspect]
     Indication: DEPRESSION
     Dosage: 10 MG, QD
     Route: 048
     Dates: start: 20101101, end: 20110301
  2. ATERAX [Concomitant]
     Indication: SLEEP DISORDER
     Dosage: UNK, EACH EVENING
     Route: 048
     Dates: start: 20110301
  3. ANTIHYPERTENSIVES [Concomitant]

REACTIONS (3)
  - MUSCLE SPASMS [None]
  - OFF LABEL USE [None]
  - SURGERY [None]
